FAERS Safety Report 8388455-1 (Version None)
Quarter: 2012Q2

REPORT INFORMATION
  Report Type: 
  Country: None (occurrence: None)
  Receive Date: 20120525
  Receipt Date: 20120517
  Transmission Date: 20120825
  Serious: Yes (Other)
  Sender: FDA-Public Use
  Company Number: JP-ASTRAZENECA-2012SE32115

PATIENT
  Age: 76 Year
  Sex: Male

DRUGS (1)
  1. XYLOCAINE W/ EPINEPHRINE [Suspect]
     Indication: INFILTRATION ANAESTHESIA
     Route: 058
     Dates: start: 20120424, end: 20120424

REACTIONS (1)
  - SKIN NECROSIS [None]
